FAERS Safety Report 8163761-4 (Version None)
Quarter: 2012Q1

REPORT INFORMATION
  Report Type: 
  Country: None (occurrence: None)
  Receive Date: 20120224
  Receipt Date: 20120220
  Transmission Date: 20120608
  Serious: Yes (Other)
  Sender: FDA-Public Use
  Company Number: PHHY2012TR015342

PATIENT
  Age: 44 Year
  Sex: Male

DRUGS (3)
  1. VOLTAREN-XR [Suspect]
     Indication: PAIN
     Route: 048
     Dates: start: 20120218
  2. VOLTAREN-XR [Suspect]
     Indication: INFLAMMATION
  3. CAFFEINE W/CODEINE PHOSPHATE/PARACETAMOL [Concomitant]
     Indication: PAIN

REACTIONS (7)
  - BLOOD PRESSURE FLUCTUATION [None]
  - PANIC ATTACK [None]
  - MUSCULAR WEAKNESS [None]
  - HEART RATE IRREGULAR [None]
  - DYSKINESIA [None]
  - BLOOD PRESSURE INCREASED [None]
  - ERYTHEMA [None]
